FAERS Safety Report 16082441 (Version 2)
Quarter: 2019Q1

REPORT INFORMATION
  Report Type: Other
  Country: IT (occurrence: IT)
  Receive Date: 20190318
  Receipt Date: 20190325
  Transmission Date: 20190418
  Serious: Yes (Other)
  Sender: FDA-Public Use
  Company Number: IT-DEXPHARM-20190195

PATIENT
  Sex: Male

DRUGS (1)
  1. CHLORHEXIDINE 2 %  IN ALCOHOL [Suspect]
     Active Substance: ALCOHOL\CHLORHEXIDINE GLUCONATE
     Route: 061

REACTIONS (2)
  - Application site discolouration [Unknown]
  - Chemical burn [Recovered/Resolved]
